FAERS Safety Report 19615450 (Version 2)
Quarter: 2022Q2

REPORT INFORMATION
  Report Type: Spontaneous
  Country: US (occurrence: US)
  Receive Date: 20210727
  Receipt Date: 20220428
  Transmission Date: 20220721
  Serious: No
  Sender: FDA-Public Use
  Company Number: US-PFIZER INC-2021581961

PATIENT
  Age: 62 Year
  Sex: Male
  Weight: 68.04 kg

DRUGS (5)
  1. HALCION [Suspect]
     Active Substance: TRIAZOLAM
     Indication: Sleep disorder
     Dosage: 0.5 MG
     Route: 048
  2. ALPRAZOLAM [Concomitant]
     Active Substance: ALPRAZOLAM
     Indication: Sleep disorder
     Dosage: 4 TABLETS DAILY
     Dates: start: 2002
  3. ALPRAZOLAM [Concomitant]
     Active Substance: ALPRAZOLAM
     Indication: Anxiety
  4. ALPRAZOLAM [Concomitant]
     Active Substance: ALPRAZOLAM
     Indication: Panic attack
  5. AMBIEN [Concomitant]
     Active Substance: ZOLPIDEM TARTRATE
     Indication: Insomnia
     Dosage: 10MG ONE TABLET NIGHTLY
     Dates: start: 2002

REACTIONS (3)
  - Aphonia [Unknown]
  - Drug ineffective [Unknown]
  - Prescription drug used without a prescription [Unknown]
